FAERS Safety Report 10019894 (Version 1)
Quarter: 2014Q1

REPORT INFORMATION
  Report Type: Spontaneous
  Country: US (occurrence: US)
  Receive Date: 20140318
  Receipt Date: 20140318
  Transmission Date: 20141002
  Serious: No
  Sender: FDA-Public Use
  Company Number: US-GALDERMA-US14000274

PATIENT
  Age: 48 Year
  Sex: Female

DRUGS (13)
  1. MIRVASO (BRIMONIDINE) TOPICAL GEL, 0.33% [Suspect]
     Indication: ROSACEA
     Dosage: 0.33%
     Route: 061
     Dates: start: 20131113, end: 20131114
  2. MIRVASO (BRIMONIDINE) TOPICAL GEL, 0.33% [Suspect]
     Dosage: 0.33%
     Route: 061
     Dates: start: 20131115, end: 20131128
  3. PURPOSE FACIAL CLEANSER [Concomitant]
     Indication: THERAPEUTIC SKIN CARE TOPICAL
     Route: 061
  4. OIL OF OLAY NIGHT CREAM [Concomitant]
     Indication: DRY SKIN PROPHYLAXIS
     Route: 061
  5. CLINIQUE SPF 30 CITY BLOCK SUNSCREEN [Concomitant]
     Indication: PROPHYLAXIS AGAINST SOLAR RADIATION
     Route: 061
  6. LEVOTHYROXINE [Concomitant]
     Indication: HYPOTHYROIDISM
     Route: 048
     Dates: start: 201305
  7. VITAMIN D [Concomitant]
     Dates: start: 2012
  8. PYCNOGENOL [Concomitant]
     Dates: start: 2013
  9. COQ10 [Concomitant]
     Dates: start: 2010
  10. FISH OIL [Concomitant]
     Dates: start: 2010
  11. PHLORETIN CF [Concomitant]
     Dates: start: 2010
  12. OXISTAT [Concomitant]
     Dates: start: 201311
  13. ELIDEL [Concomitant]
     Dates: end: 201304

REACTIONS (4)
  - Erythema [Recovered/Resolved]
  - Skin warm [Recovered/Resolved]
  - Flushing [Recovered/Resolved]
  - Inappropriate schedule of drug administration [Recovered/Resolved]
